FAERS Safety Report 8551699 (Version 2)
Quarter: 2014Q1

REPORT INFORMATION
  Report Type: Spontaneous
  Country: US (occurrence: US)
  Receive Date: 20120508
  Receipt Date: 20140117
  Transmission Date: 20141002
  Serious: Yes (Other)
  Sender: FDA-Public Use
  Company Number: US-ASTRAZENECA-2012SE28316

PATIENT
  Age: 57 Year
  Sex: Female
  Weight: 99.8 kg

DRUGS (3)
  1. NEXIUM [Suspect]
     Indication: GASTROOESOPHAGEAL REFLUX DISEASE
     Route: 048
     Dates: start: 2011, end: 20131230
  2. NEXIUM [Suspect]
     Indication: GASTROOESOPHAGEAL REFLUX DISEASE
     Route: 048
     Dates: start: 20140107
  3. ACIPHEX [Concomitant]

REACTIONS (8)
  - Renal failure [Unknown]
  - Sensation of foreign body [Unknown]
  - Pain [Unknown]
  - Gastrooesophageal reflux disease [Recovered/Resolved]
  - Sleep disorder due to a general medical condition [Unknown]
  - Sleep disorder due to general medical condition, insomnia type [Recovered/Resolved]
  - Off label use [Unknown]
  - Intentional drug misuse [Unknown]
